FAERS Safety Report 19449463 (Version 1)
Quarter: 2021Q2

REPORT INFORMATION
  Report Type: Spontaneous
  Country: SE (occurrence: SE)
  Receive Date: 20210622
  Receipt Date: 20210622
  Transmission Date: 20210717
  Serious: Yes (Death, Life-Threatening, Hospitalization, Other)
  Sender: FDA-Public Use
  Company Number: SE-AMGEN-SWESP2021093129

PATIENT

DRUGS (1)
  1. FILGRASTIM [Suspect]
     Active Substance: FILGRASTIM
     Indication: PRODUCT USED FOR UNKNOWN INDICATION
     Dosage: UNK
     Route: 065

REACTIONS (23)
  - Herpes simplex [Unknown]
  - Mucosal inflammation [Unknown]
  - General physical health deterioration [Unknown]
  - Vomiting [Unknown]
  - Pyrexia [Unknown]
  - Diarrhoea [Unknown]
  - Infection [Unknown]
  - Electrolyte imbalance [Unknown]
  - Rash [Unknown]
  - Seizure [Unknown]
  - Malnutrition [Unknown]
  - Complication associated with device [Unknown]
  - Poisoning [Unknown]
  - Chest pain [Unknown]
  - Death [Fatal]
  - Haemorrhage [Unknown]
  - Chronic graft versus host disease [Unknown]
  - Pain [Unknown]
  - Nausea [Unknown]
  - Headache [Unknown]
  - Cytokine increased [Unknown]
  - Acute graft versus host disease [Unknown]
  - Disease recurrence [Unknown]
